FAERS Safety Report 7417243-5 (Version None)
Quarter: 2011Q2

REPORT INFORMATION
  Report Type: 
  Country: None (occurrence: None)
  Receive Date: 20110407
  Receipt Date: 20110329
  Transmission Date: 20111010
  Serious: Yes (Other)
  Sender: FDA-Public Use
  Company Number: FK201100617

PATIENT
  Age: 27 Year
  Sex: Male

DRUGS (1)
  1. DOXORUBICIN (MANUFACTURER UNKNOWN) (DOXORUBICIN HYDROCHLORIDE) (DOXORU [Suspect]
     Indication: SARCOMA
     Dosage: 500 MG/M2; INTRAVENOUS (NOT OTHERWISE SPECIFIED)
     Route: 042

REACTIONS (10)
  - CARDIOTOXICITY [None]
  - BLOOD BILIRUBIN INCREASED [None]
  - DYSPNOEA [None]
  - PULMONARY HYPERTENSION [None]
  - ASTHENIA [None]
  - HYPONATRAEMIA [None]
  - HEPATOMEGALY [None]
  - LEFT VENTRICULAR DYSFUNCTION [None]
  - BRAIN NATRIURETIC PEPTIDE INCREASED [None]
  - CARDIAC FAILURE [None]
